FAERS Safety Report 11854711 (Version 1)
Quarter: 2015Q4

REPORT INFORMATION
  Report Type: Spontaneous
  Country: GB (occurrence: GB)
  Receive Date: 20151221
  Receipt Date: 20151221
  Transmission Date: 20160305
  Serious: Yes (Other)
  Sender: FDA-Public Use
  Company Number: GB-TEVA-617037ACC

PATIENT
  Age: 78 Year
  Sex: Female
  Weight: 70 kg

DRUGS (13)
  1. PREDNISOLONE. [Concomitant]
     Active Substance: PREDNISOLONE
     Dosage: USE AS DIRECTED
     Dates: start: 20150324
  2. CLOTRIMAZOLE. [Concomitant]
     Active Substance: CLOTRIMAZOLE
     Dosage: 1 DOSAGE FORMS DAILY; 1 DOSAGE FORM, INSERT ONE AT NIGHT
     Dates: start: 20151009, end: 20151012
  3. LEVEMIR [Concomitant]
     Active Substance: INSULIN DETEMIR
     Dosage: USE AS DIRECTED
     Dates: start: 20151111
  4. CO-AMOXICLAV [Concomitant]
     Active Substance: AMOXICILLIN\CLAVULANIC ACID
     Dosage: 3 DOSAGE FORMS DAILY;
     Dates: start: 20150925, end: 20151002
  5. PARACETAMOL [Concomitant]
     Active Substance: ACETAMINOPHEN
     Dosage: EVERY 4 TO 6 HOURS.
     Dates: start: 20131031
  6. FUROSEMIDE. [Concomitant]
     Active Substance: FUROSEMIDE
     Dosage: 1 DOSAGE FORMS DAILY; 1 DOSAGE FORM, EACH MORNING
     Dates: start: 20150625
  7. TRIMETHOPRIM. [Concomitant]
     Active Substance: TRIMETHOPRIM
     Indication: URINARY TRACT INFECTION
     Dates: start: 20151201
  8. NITROFURANTOIN. [Suspect]
     Active Substance: NITROFURANTOIN
     Dates: start: 20151201
  9. GLICLAZIDE [Concomitant]
     Active Substance: GLICLAZIDE
     Dosage: 4 DOSAGE FORMS DAILY;
     Dates: start: 20131031
  10. MYCOPHENOLATE MOFETIL. [Concomitant]
     Active Substance: MYCOPHENOLATE MOFETIL
     Dosage: RED TRAFFIC LIGHT DRUG SHOULD NOT BE PRESCRIBED
     Dates: start: 20151026, end: 20151026
  11. OMEPRAZOLE. [Concomitant]
     Active Substance: OMEPRAZOLE
     Dosage: 1 DOSAGE FORMS DAILY;
     Dates: start: 20140211
  12. AMIAS [Concomitant]
     Active Substance: CANDESARTAN CILEXETIL
     Dosage: 1 DOSAGE FORMS DAILY;
     Dates: start: 20131031
  13. AMLODIPINE [Concomitant]
     Active Substance: AMLODIPINE BESYLATE
     Dosage: 1 DOSAGE FORMS DAILY;
     Dates: start: 20131031

REACTIONS (3)
  - Dizziness [Recovering/Resolving]
  - Local swelling [Recovered/Resolved]
  - Pharyngeal oedema [Recovered/Resolved]

NARRATIVE: CASE EVENT DATE: 20151201
